FAERS Safety Report 21383444 (Version 1)
Quarter: 2022Q3

REPORT INFORMATION
  Report Type: Spontaneous
  Country: FR (occurrence: FR)
  Receive Date: 20220927
  Receipt Date: 20220927
  Transmission Date: 20221027
  Serious: Yes (Other)
  Sender: FDA-Public Use
  Company Number: FR-NOVARTISPH-NVSC2022FR215599

PATIENT
  Age: 87 Year
  Sex: Female

DRUGS (1)
  1. PREDNISONE [Suspect]
     Active Substance: PREDNISONE
     Indication: Acquired haemophilia
     Dosage: 1 MG/KG, QD FOR ATLEAST 3 WEEKS
     Route: 065

REACTIONS (4)
  - Acquired haemophilia [Unknown]
  - Disease recurrence [Unknown]
  - Therapy partial responder [Unknown]
  - Product use in unapproved indication [Unknown]
